FAERS Safety Report 9175998 (Version 1)
Quarter: 2013Q1

REPORT INFORMATION
  Report Type: Other
  Country: GB (occurrence: GB)
  Receive Date: 20130320
  Receipt Date: 20130320
  Transmission Date: 20140127
  Serious: Yes (Hospitalization)
  Sender: FDA-Public Use
  Company Number: GB-WATSON-2013-04764

PATIENT
  Age: 46 Year
  Sex: Female

DRUGS (2)
  1. ACETAMINOPHEN-CODEINE PHOSPHATE [Suspect]
     Indication: ARTHRALGIA
     Dosage: 2 DF, 1 INTERVAL
     Route: 048
     Dates: start: 20130223, end: 20130223
  2. ETOPAN XL [Concomitant]
     Indication: PRODUCT USED FOR UNKNOWN INDICATION
     Dosage: UNK, UNKNOWN
     Route: 065

REACTIONS (3)
  - Abdominal pain upper [Recovered/Resolved]
  - Vomiting [Recovered/Resolved]
  - Malaise [Recovered/Resolved]
